FAERS Safety Report 7413797-3 (Version None)
Quarter: 2011Q2

REPORT INFORMATION
  Report Type: 
  Country: None (occurrence: None)
  Receive Date: 20110413
  Receipt Date: 20110406
  Transmission Date: 20111010
  Serious: Yes (Life-Threatening)
  Sender: FDA-Public Use
  Company Number: US-MERCK-1103USA00841

PATIENT
  Sex: Female

DRUGS (1)
  1. ZETIA [Suspect]
     Route: 048

REACTIONS (11)
  - BACK PAIN [None]
  - DIZZINESS [None]
  - HEAD INJURY [None]
  - IMPAIRED DRIVING ABILITY [None]
  - HEADACHE [None]
  - OESOPHAGEAL SPASM [None]
  - LOSS OF CONSCIOUSNESS [None]
  - FALL [None]
  - VASOSPASM [None]
  - PHOTOPSIA [None]
  - INJURY [None]
